FAERS Safety Report 9316136 (Version 2)
Quarter: 2013Q3

REPORT INFORMATION
  Report Type: Spontaneous
  Country: US (occurrence: US)
  Receive Date: 20130530
  Receipt Date: 20130802
  Transmission Date: 20140515
  Serious: No
  Sender: FDA-Public Use
  Company Number: US-B.I. PHARMACEUTICALS,INC./RIDGEFIELD-2013-BI-14946BP

PATIENT
  Age: 83 Year
  Sex: Male

DRUGS (8)
  1. SPIRIVA [Suspect]
     Indication: CHRONIC OBSTRUCTIVE PULMONARY DISEASE
     Dosage: 18 MCG
     Route: 055
     Dates: start: 2010
  2. SPIRIVA [Suspect]
     Indication: EMPHYSEMA
     Dosage: 18 MCG
     Route: 055
     Dates: start: 2011
  3. ZOCOR [Concomitant]
     Indication: BLOOD CHOLESTEROL INCREASED
     Route: 048
  4. PRIOLOSEC [Concomitant]
     Indication: DYSPEPSIA
     Route: 048
  5. PRIOLOSEC [Concomitant]
     Indication: INSOMNIA
  6. VALIUM [Concomitant]
     Indication: INSOMNIA
     Route: 048
  7. VALIUM [Concomitant]
     Route: 048
  8. LIBRIUM [Concomitant]
     Indication: INSOMNIA
     Route: 048

REACTIONS (5)
  - Urinary retention [Not Recovered/Not Resolved]
  - Dyspnoea exertional [Not Recovered/Not Resolved]
  - Dry mouth [Not Recovered/Not Resolved]
  - Dyspnoea exertional [Not Recovered/Not Resolved]
  - Back injury [Not Recovered/Not Resolved]
